FAERS Safety Report 24030604 (Version 1)
Quarter: 2024Q2

REPORT INFORMATION
  Report Type: Spontaneous
  Country: US (occurrence: US)
  Receive Date: 20240628
  Receipt Date: 20240628
  Transmission Date: 20240716
  Serious: No
  Sender: FDA-Public Use
  Company Number: US-BIOGEN-2024BI01259513

PATIENT
  Sex: Female

DRUGS (18)
  1. VUMERITY [Suspect]
     Active Substance: DIROXIMEL FUMARATE
     Indication: Multiple sclerosis
     Dosage: TAKE 2 CAPSULES (462MG) BY MOUTH TWICE DAILY.
     Route: 050
     Dates: start: 20230309
  2. AMLODIPINE BESYLATE [Concomitant]
     Active Substance: AMLODIPINE BESYLATE
     Route: 050
  3. ASPIRIN 81 LOW DOSE [Concomitant]
     Dosage: LOW DOSE
     Route: 050
  4. INOSITOL [Concomitant]
     Active Substance: INOSITOL
     Route: 050
  5. VITAMIN D3 [Concomitant]
     Active Substance: CHOLECALCIFEROL
     Route: 050
  6. COENZYME Q10 [Concomitant]
     Active Substance: DIETARY SUPPLEMENT\UBIDECARENONE
     Route: 050
  7. CALCIUM [Concomitant]
     Active Substance: CALCIUM
     Dosage: HIGH POTENCY
     Route: 050
  8. ALPHA LIPOIC ACID [Concomitant]
     Active Substance: .ALPHA.-LIPOIC ACID
     Route: 050
  9. HERBALS\TURMERIC [Concomitant]
     Active Substance: HERBALS\TURMERIC
     Route: 050
  10. CHROMIUM PICOLINATE [Concomitant]
     Active Substance: CHROMIUM PICOLINATE
     Route: 050
  11. ZINC [Concomitant]
     Active Substance: PYRITHIONE ZINC\ZINC\ZINC CHLORIDE
     Route: 050
  12. VITAMIN B12 [Concomitant]
     Active Substance: CYANOCOBALAMIN
     Route: 050
  13. IRON [Concomitant]
     Active Substance: IRON
     Route: 050
  14. VITAMIN C [Concomitant]
     Active Substance: ASCORBIC ACID
     Route: 050
  15. MAGNESIUM [Concomitant]
     Active Substance: MAGNESIUM
     Route: 050
  16. THIAMINE HYDROCHLORIDE [Concomitant]
     Active Substance: THIAMINE HYDROCHLORIDE
     Route: 050
  17. DIETARY SUPPLEMENT\HERBALS\MILK THISTLE [Concomitant]
     Active Substance: MILK THISTLE
     Route: 050
  18. GINKGO [Concomitant]
     Active Substance: GINKGO
     Route: 050

REACTIONS (4)
  - Product dose omission issue [Unknown]
  - Epistaxis [Unknown]
  - Paraesthesia [Recovered/Resolved]
  - Hypoaesthesia [Recovered/Resolved]

NARRATIVE: CASE EVENT DATE: 20240101
